FAERS Safety Report 23451188 (Version 1)
Quarter: 2024Q1

REPORT INFORMATION
  Report Type: Spontaneous
  Country: CN (occurrence: CN)
  Receive Date: 20240129
  Receipt Date: 20240129
  Transmission Date: 20240409
  Serious: Yes (Life-Threatening, Other)
  Sender: FDA-Public Use
  Company Number: CN-009507513-2401CHN014049

PATIENT
  Age: 53 Year
  Sex: Male
  Weight: 40 kg

DRUGS (1)
  1. CILASTATIN SODIUM\IMIPENEM [Suspect]
     Active Substance: CILASTATIN SODIUM\IMIPENEM
     Indication: Anti-infective therapy
     Dosage: 0.5 GRAM, QD
     Route: 041
     Dates: start: 20240108, end: 20240110

REACTIONS (4)
  - Seizure [Recovering/Resolving]
  - Heart rate increased [Unknown]
  - Dysphoria [Unknown]
  - Inappropriate schedule of product administration [Unknown]

NARRATIVE: CASE EVENT DATE: 20240108
